FAERS Safety Report 12866896 (Version 1)
Quarter: 2016Q4

REPORT INFORMATION
  Report Type: Spontaneous
  Country: SE (occurrence: SE)
  Receive Date: 20161020
  Receipt Date: 20161020
  Transmission Date: 20170207
  Serious: Yes (Other)
  Sender: FDA-Public Use
  Company Number: SE-TEVA-702172ROM

PATIENT
  Age: 74 Year
  Sex: Male

DRUGS (2)
  1. ENALAPRIL [Suspect]
     Active Substance: ENALAPRIL
  2. NAPROXEN. [Suspect]
     Active Substance: NAPROXEN

REACTIONS (4)
  - Red blood cell sedimentation rate increased [Not Recovered/Not Resolved]
  - Oedema peripheral [Not Recovered/Not Resolved]
  - Heart rate irregular [Not Recovered/Not Resolved]
  - Haemoglobin decreased [Not Recovered/Not Resolved]
